FAERS Safety Report 10791396 (Version 1)
Quarter: 2015Q1

REPORT INFORMATION
  Report Type: Spontaneous
  Country: TW (occurrence: TW)
  Receive Date: 20150213
  Receipt Date: 20150213
  Transmission Date: 20150721
  Serious: Yes (Death)
  Sender: FDA-Public Use
  Company Number: TW-PFIZER INC-2014277998

PATIENT
  Age: 65 Year
  Sex: Female

DRUGS (1)
  1. SUTENT [Suspect]
     Active Substance: SUNITINIB MALATE
     Indication: RENAL CELL CARCINOMA
     Dosage: 50 MG, ONCE DAILY TWO WEEKS ON AND ONE WEEK OFF
     Route: 048
     Dates: start: 20140926, end: 20150102

REACTIONS (13)
  - Vomiting [Unknown]
  - Nausea [Unknown]
  - Renal cell carcinoma [Unknown]
  - Diarrhoea [Unknown]
  - Cough [Unknown]
  - Abdominal discomfort [Unknown]
  - Death [Fatal]
  - Hypertension [Recovering/Resolving]
  - Decreased appetite [Unknown]
  - Face oedema [Recovering/Resolving]
  - Mouth ulceration [Unknown]
  - Oedema peripheral [Recovering/Resolving]
  - Disease progression [Unknown]

NARRATIVE: CASE EVENT DATE: 2014
